FAERS Safety Report 16424013 (Version 3)
Quarter: 2019Q2

REPORT INFORMATION
  Report Type: Report from Study
  Country: None (occurrence: SE)
  Receive Date: 20190613
  Receipt Date: 20190618
  Transmission Date: 20190711
  Serious: Yes (Hospitalization, Other)
  Sender: FDA-Public Use
  Company Number: SE-ABBVIE-19S-150-2816088-00

PATIENT
  Age: 74 Year
  Sex: Male
  Weight: 63 kg

DRUGS (3)
  1. DUODOPA [Suspect]
     Active Substance: CARBIDOPA\LEVODOPA
     Indication: PARKINSON^S DISEASE
     Route: 050
     Dates: start: 20151102, end: 201511
  2. IBUPROFEN. [Concomitant]
     Active Substance: IBUPROFEN
     Indication: PRODUCT USED FOR UNKNOWN INDICATION
     Dosage: AS NEEDED
  3. DUODOPA [Suspect]
     Active Substance: CARBIDOPA\LEVODOPA
     Route: 050
     Dates: start: 20151118

REACTIONS (14)
  - Faeces discoloured [Recovered/Resolved]
  - Fall [Unknown]
  - Small intestinal haemorrhage [Recovered/Resolved]
  - Haemoglobin decreased [Recovered/Resolved]
  - Abdominal pain [Unknown]
  - Arthropathy [Unknown]
  - Fatigue [Recovered/Resolved]
  - Cardiac ventricular disorder [Unknown]
  - Myocardial infarction [Recovered/Resolved]
  - Gastrointestinal mucosal disorder [Recovered/Resolved]
  - Abdominal pain upper [Recovered/Resolved]
  - Medical device site erosion [Unknown]
  - Device connection issue [Recovered/Resolved]
  - Hip fracture [Unknown]

NARRATIVE: CASE EVENT DATE: 2019
